FAERS Safety Report 9875008 (Version 1)
Quarter: 2014Q1

REPORT INFORMATION
  Report Type: Spontaneous
  Country: US (occurrence: None)
  Receive Date: 20140205
  Receipt Date: 20140205
  Transmission Date: 20141002
  Serious: Yes (Disabling)
  Sender: FDA-Public Use
  Company Number: None

PATIENT
  Age: 58 Year
  Sex: Male
  Weight: 87.54 kg

DRUGS (1)
  1. LUPRON DEPOT [Suspect]
     Indication: PROSTATE CANCER
     Dosage: SHOT EVERY 30 DAYS ?EVERY 30 DAYS?INTO THE MUSCLE
     Dates: start: 20130520, end: 20130620

REACTIONS (11)
  - Feeling cold [None]
  - Hypoaesthesia [None]
  - Formication [None]
  - Muscle spasms [None]
  - Insomnia [None]
  - Dyspnoea [None]
  - Monoplegia [None]
  - Tremor [None]
  - Neuromyopathy [None]
  - Convulsion [None]
  - Myocardial infarction [None]
